FAERS Safety Report 15223502 (Version 1)
Quarter: 2018Q3

REPORT INFORMATION
  Report Type: Spontaneous
  Country: US (occurrence: US)
  Receive Date: 20180731
  Receipt Date: 20180731
  Transmission Date: 20181010
  Serious: No
  Sender: FDA-Public Use
  Company Number: US-ENDO PHARMACEUTICALS INC-2018-039848

PATIENT
  Sex: Male

DRUGS (1)
  1. TESTOPEL [Suspect]
     Active Substance: TESTOSTERONE
     Indication: PRODUCT USED FOR UNKNOWN INDICATION
     Dosage: 600 MG (8 PELLETS), ONCE EVERY 13 WEEKS
     Route: 030

REACTIONS (3)
  - Blood testosterone increased [Recovered/Resolved]
  - Prescribed overdose [Unknown]
  - Blood testosterone decreased [Unknown]
